FAERS Safety Report 13774026 (Version 1)
Quarter: 2017Q3

REPORT INFORMATION
  Report Type: Spontaneous
  Country: US (occurrence: US)
  Receive Date: 20170720
  Receipt Date: 20170720
  Transmission Date: 20171127
  Serious: No
  Sender: FDA-Public Use
  Company Number: None

PATIENT
  Age: 72 Year
  Sex: Male

DRUGS (1)
  1. CAPECITABINE 500 MG ACCORD [Suspect]
     Active Substance: CAPECITABINE
     Indication: NEOPLASM MALIGNANT
     Dosage: 500MG TAKE 2 TABS TWICE DAILY FOR 14 DAYS THEN OFF FOR 7 DAYS ORALLY
     Route: 048
     Dates: start: 20170329

REACTIONS (1)
  - Rash macular [None]

NARRATIVE: CASE EVENT DATE: 20170614
